FAERS Safety Report 8450846 (Version 3)
Quarter: 2013Q4

REPORT INFORMATION
  Report Type: Report from Study
  Country: TW (occurrence: TW)
  Receive Date: 20120309
  Receipt Date: 20131003
  Transmission Date: 20140711
  Serious: Yes (Other)
  Sender: FDA-Public Use
  Company Number: TW-CELGENEUS-153-21880-12022911

PATIENT
  Age: 55 Year
  Sex: Male
  Weight: 72.6 kg

DRUGS (79)
  1. REVLIMID [Suspect]
     Indication: PLASMA CELL MYELOMA
     Dosage: 15 MILLIGRAM
     Route: 048
     Dates: start: 20110614, end: 20111010
  2. HEPARIN SODIUM [Concomitant]
     Indication: PRODUCT USED FOR UNKNOWN INDICATION
     Dosage: 500U/5ML
     Route: 041
  3. HEPARIN SODIUM [Concomitant]
     Dosage: 500U/5ML
     Route: 041
  4. TRAMAL [Concomitant]
     Indication: PRODUCT USED FOR UNKNOWN INDICATION
     Dosage: 100 MILLIGRAM
     Route: 048
  5. TRAMAL [Concomitant]
     Dosage: 1
     Route: 041
     Dates: start: 20120203, end: 20120204
  6. TRAMAL [Concomitant]
     Dosage: .5
     Route: 041
     Dates: start: 20120211, end: 20120212
  7. TRAMAL [Concomitant]
     Dosage: 1
     Route: 041
     Dates: start: 20120222
  8. TRAMAL [Concomitant]
     Dosage: 1
     Route: 048
     Dates: start: 20120225
  9. TRAMAL [Concomitant]
     Dosage: 50 MILLIGRAM
     Route: 048
     Dates: start: 20120120, end: 20120120
  10. ALLERMIN [Concomitant]
     Indication: PRODUCT USED FOR UNKNOWN INDICATION
     Dosage: 5MG/ML
     Route: 041
     Dates: start: 20120121, end: 20120122
  11. ALLERMIN [Concomitant]
     Dosage: 5MG/ML
     Route: 041
     Dates: start: 20120131, end: 20120201
  12. ALLERMIN [Concomitant]
     Dosage: 5MG/ML
     Route: 041
     Dates: start: 20120203, end: 20120204
  13. ALLERMIN [Concomitant]
     Dosage: 5MG/ML
     Route: 041
     Dates: start: 20120206, end: 20120207
  14. ALLERMIN [Concomitant]
     Dosage: 5MG/ML
     Route: 041
     Dates: start: 20120210, end: 20120211
  15. ALLERMIN [Concomitant]
     Dosage: 5MG/ML
     Route: 041
     Dates: start: 20120211, end: 20120212
  16. ALLERMIN [Concomitant]
     Dosage: 5MG/ML
     Route: 041
     Dates: start: 20120221, end: 20120222
  17. ALLERMIN [Concomitant]
     Dosage: 5MG/ML
     Route: 041
     Dates: start: 20120227, end: 20120228
  18. ALLERMIN [Concomitant]
     Dosage: 5MG/ML
     Route: 041
  19. NORMAL SALINE [Concomitant]
     Indication: PRODUCT USED FOR UNKNOWN INDICATION
     Dosage: 500 MILLILITER
     Route: 041
     Dates: start: 20120121, end: 20120122
  20. NORMAL SALINE [Concomitant]
     Dosage: 500 MILLILITER
     Route: 041
     Dates: start: 20120131, end: 20120201
  21. NORMAL SALINE [Concomitant]
     Dosage: 250 MILLILITER
     Route: 041
     Dates: start: 20120203, end: 20120204
  22. NORMAL SALINE [Concomitant]
     Dosage: 250 MILLILITER
     Route: 041
     Dates: start: 20120206, end: 20120207
  23. NORMAL SALINE [Concomitant]
     Dosage: 250 MILLILITER
     Route: 041
     Dates: start: 20120210, end: 20120211
  24. NORMAL SALINE [Concomitant]
     Dosage: 250 MILLILITER
     Route: 041
     Dates: start: 20120211, end: 20120212
  25. NORMAL SALINE [Concomitant]
     Dosage: 500 MILLILITER
     Route: 041
     Dates: start: 20120211, end: 20120212
  26. NORMAL SALINE [Concomitant]
     Dosage: 250
     Route: 041
     Dates: start: 20120220, end: 20120221
  27. NORMAL SALINE [Concomitant]
     Dosage: 500 MILLILITER
     Route: 041
     Dates: start: 20120221
  28. NORMAL SALINE [Concomitant]
     Dosage: 500 MILLILITER
     Route: 041
     Dates: start: 20120223
  29. NORMAL SALINE [Concomitant]
     Dosage: 500 MILLILITER
     Route: 041
     Dates: start: 20120224
  30. NORMAL SALINE [Concomitant]
     Dosage: 500 MILLILITER
     Route: 041
     Dates: start: 20120117, end: 20120117
  31. ECONAZOLE [Concomitant]
     Indication: PRODUCT USED FOR UNKNOWN INDICATION
     Route: 061
     Dates: start: 20120225
  32. NORVASC [Concomitant]
     Indication: PRODUCT USED FOR UNKNOWN INDICATION
     Dosage: 10 MILLIGRAM
     Route: 048
     Dates: start: 20120215, end: 20120229
  33. NEOMYCIN [Concomitant]
     Indication: PRODUCT USED FOR UNKNOWN INDICATION
     Route: 065
     Dates: start: 20120224
  34. CEFMETAZOLE [Concomitant]
     Indication: PRODUCT USED FOR UNKNOWN INDICATION
     Dosage: 2000 MILLIGRAM
     Route: 041
     Dates: start: 20120227
  35. CALAMINE [Concomitant]
     Indication: PRODUCT USED FOR UNKNOWN INDICATION
     Dosage: 100 MILLILITER
     Route: 061
     Dates: start: 20120214, end: 20120229
  36. TAZOCIN [Concomitant]
     Indication: PRODUCT USED FOR UNKNOWN INDICATION
     Dosage: 2.25 MILLIGRAM
     Route: 041
     Dates: start: 20120120, end: 20120121
  37. TAZOCIN [Concomitant]
     Dosage: 2.25 MILLIGRAM
     Route: 041
     Dates: start: 20120120, end: 20120203
  38. DEFENSE [Concomitant]
     Indication: PRODUCT USED FOR UNKNOWN INDICATION
     Dosage: 300
     Route: 048
     Dates: start: 20120122, end: 20120123
  39. DEFENSE [Concomitant]
     Dosage: 2.25 MILLIGRAM
     Route: 041
  40. ULTRACET [Concomitant]
     Indication: PRODUCT USED FOR UNKNOWN INDICATION
     Dosage: 1 TABLET
     Route: 048
     Dates: start: 20120128, end: 20120129
  41. ULTRACET [Concomitant]
     Dosage: 2.25 MILLIGRAM
     Route: 041
  42. MYDOCALM [Concomitant]
     Indication: PRODUCT USED FOR UNKNOWN INDICATION
     Dosage: 150 MILLIGRAM
     Route: 048
     Dates: start: 20120128, end: 20120129
  43. MYDOCALM [Concomitant]
     Dosage: 2.25 MILLIGRAM
     Route: 041
  44. CALGLON [Concomitant]
     Indication: PRODUCT USED FOR UNKNOWN INDICATION
     Dosage: 10 MILLILITER
     Route: 041
     Dates: start: 20120131, end: 20120201
  45. CALGLON [Concomitant]
     Dosage: 2.25 MILLIGRAM
     Route: 041
  46. LASIX [Concomitant]
     Indication: PRODUCT USED FOR UNKNOWN INDICATION
     Dosage: 20MG/ML
     Route: 041
     Dates: start: 20120131, end: 20120201
  47. LASIX [Concomitant]
     Dosage: 20MG/2ML
     Route: 041
     Dates: start: 20120207, end: 20120208
  48. LASIX [Concomitant]
     Dosage: 20MG/2ML
     Route: 041
     Dates: start: 20120221, end: 20120222
  49. KLEAN-PREP [Concomitant]
     Indication: PRODUCT USED FOR UNKNOWN INDICATION
     Dosage: X2
     Route: 065
     Dates: start: 20120201, end: 20120202
  50. EVAC ENEMA [Concomitant]
     Indication: PRODUCT USED FOR UNKNOWN INDICATION
     Dosage: 118ML
     Route: 054
     Dates: start: 20120203, end: 20120204
  51. SOD BICARBONATE [Concomitant]
     Indication: PRODUCT USED FOR UNKNOWN INDICATION
     Dosage: 4.5
     Route: 041
     Dates: start: 20120208, end: 20120209
  52. D5W [Concomitant]
     Indication: PRODUCT USED FOR UNKNOWN INDICATION
     Dosage: 500 MILLILITER
     Route: 041
     Dates: start: 20120208, end: 20120209
  53. D5W [Concomitant]
     Dosage: 500 MILLILITER
     Route: 041
     Dates: start: 20120210, end: 20120211
  54. ACETYLCYSTEINE A [Concomitant]
     Indication: PRODUCT USED FOR UNKNOWN INDICATION
     Dosage: 2
     Route: 048
     Dates: start: 20120209, end: 20120210
  55. CONCOR [Concomitant]
     Indication: PRODUCT USED FOR UNKNOWN INDICATION
     Dosage: .5 TABLET
     Route: 048
  56. CONCOR [Concomitant]
     Route: 048
     Dates: start: 20120227
  57. RINDERON-V [Concomitant]
     Indication: PRODUCT USED FOR UNKNOWN INDICATION
     Route: 061
     Dates: start: 20120227
  58. ALLEGRA [Concomitant]
     Indication: PRODUCT USED FOR UNKNOWN INDICATION
     Dosage: 120 MILLIGRAM
     Route: 048
     Dates: start: 20120227
  59. PRIMPERAN [Concomitant]
     Indication: PRODUCT USED FOR UNKNOWN INDICATION
     Dosage: 15 MILLIGRAM
     Route: 048
  60. PRIMPERAN [Concomitant]
     Dosage: 10 MILLIGRAM
     Route: 041
     Dates: start: 20120121, end: 20120125
  61. S-60 [Concomitant]
     Indication: PRODUCT USED FOR UNKNOWN INDICATION
     Dosage: 1000 MILLIGRAM
     Route: 041
     Dates: start: 20120210, end: 20120211
  62. METRONIDAZOLE [Concomitant]
     Indication: PRODUCT USED FOR UNKNOWN INDICATION
     Dosage: 500 MILLIGRAM
     Route: 041
     Dates: start: 20120210, end: 20120211
  63. TAITA NO. 3 [Concomitant]
     Indication: PRODUCT USED FOR UNKNOWN INDICATION
     Dosage: 500
     Route: 041
     Dates: start: 20120211, end: 20120212
  64. DEMEROL [Concomitant]
     Indication: PRODUCT USED FOR UNKNOWN INDICATION
     Dosage: 50 MILLIGRAM
     Route: 041
     Dates: start: 20120211, end: 20120212
  65. DEMEROL [Concomitant]
     Dosage: 50 MILLIGRAM
     Route: 041
     Dates: start: 20120211, end: 20120212
  66. DEMEROL [Concomitant]
     Dosage: 50 MILLIGRAM
     Route: 041
     Dates: start: 20120221, end: 20120222
  67. MORPHINE HCL [Concomitant]
     Indication: PRODUCT USED FOR UNKNOWN INDICATION
     Dosage: 3 MILLIGRAM
     Route: 041
     Dates: start: 20120211, end: 20120212
  68. PERDIPINE [Concomitant]
     Indication: PRODUCT USED FOR UNKNOWN INDICATION
     Dosage: 10 MILLIGRAM
     Route: 041
     Dates: start: 20120211, end: 20120212
  69. LACTATED RINGER [Concomitant]
     Indication: PRODUCT USED FOR UNKNOWN INDICATION
     Route: 041
     Dates: start: 20120211, end: 20120212
  70. RINGER^S SOLUTION [Concomitant]
     Indication: PRODUCT USED FOR UNKNOWN INDICATION
     Dosage: 500
     Route: 041
     Dates: start: 20120211, end: 20120212
  71. TRANDATE [Concomitant]
     Indication: PRODUCT USED FOR UNKNOWN INDICATION
     Dosage: 5MG/0.5
     Route: 041
     Dates: start: 20120213, end: 20120214
  72. TRANDATE [Concomitant]
     Dosage: 5MG/0.5
     Route: 041
     Dates: start: 20120214, end: 20120215
  73. ATIVAN [Concomitant]
     Indication: PRODUCT USED FOR UNKNOWN INDICATION
     Dosage: .5 MILLIGRAM
     Route: 048
     Dates: start: 20120220, end: 20120221
  74. MGO [Concomitant]
     Indication: PRODUCT USED FOR UNKNOWN INDICATION
     Dosage: 250 MILLIGRAM
     Route: 048
     Dates: start: 20120120, end: 20120123
  75. BACIDE [Concomitant]
     Indication: PRODUCT USED FOR UNKNOWN INDICATION
     Dosage: 800 MILLIGRAM
     Route: 048
  76. GENESAFE [Concomitant]
     Indication: PRODUCT USED FOR UNKNOWN INDICATION
     Dosage: 600 MILLIGRAM
     Route: 048
  77. STROCAIN [Concomitant]
     Indication: PRODUCT USED FOR UNKNOWN INDICATION
     Route: 048
  78. MIZOLLEN [Concomitant]
     Indication: PRODUCT USED FOR UNKNOWN INDICATION
     Dosage: 10 MILLIGRAM
     Route: 048
  79. SANDIMMUN [Concomitant]
     Indication: PRODUCT USED FOR UNKNOWN INDICATION
     Dosage: 50 MILLILITER
     Route: 048

REACTIONS (1)
  - Adenocarcinoma of colon [Not Recovered/Not Resolved]
